FAERS Safety Report 8009281-9 (Version None)
Quarter: 2011Q4

REPORT INFORMATION
  Report Type: 
  Country: None (occurrence: None)
  Receive Date: 20111227
  Receipt Date: 20111213
  Transmission Date: 20120403
  Serious: Yes (Hospitalization)
  Sender: FDA-Public Use
  Company Number: IE-MEDIMMUNE-MEDI-0014245

PATIENT
  Sex: Male

DRUGS (6)
  1. RANITIDINE [Concomitant]
  2. PHENYTOIN [Concomitant]
  3. SYNAGIS [Suspect]
     Route: 030
     Dates: start: 20111014, end: 20111014
  4. HYOSCINE [Concomitant]
  5. NG FEEDS [Concomitant]
  6. PHENOBARBITAL TAB [Concomitant]

REACTIONS (1)
  - LOWER RESPIRATORY TRACT INFECTION [None]
